FAERS Safety Report 9182787 (Version 1)
Quarter: 2013Q1

REPORT INFORMATION
  Report Type: Spontaneous
  Country: US (occurrence: US)
  Receive Date: 20130322
  Receipt Date: 20130322
  Transmission Date: 20140127
  Serious: Yes (Other)
  Sender: FDA-Public Use
  Company Number: US-FRI-1000043618

PATIENT
  Sex: Female

DRUGS (2)
  1. LEXAPRO [Suspect]
  2. CYMBALTA [Suspect]

REACTIONS (3)
  - Convulsion [Unknown]
  - Drug hypersensitivity [Unknown]
  - Anger [Unknown]
